FAERS Safety Report 14187055 (Version 1)
Quarter: 2017Q4

REPORT INFORMATION
  Report Type: Spontaneous
  Country: US (occurrence: US)
  Receive Date: 20171113
  Receipt Date: 20171113
  Transmission Date: 20180321
  Serious: Yes (Life-Threatening, Disabling, Other)
  Sender: FDA-Public Use
  Company Number: None

PATIENT
  Age: 11 Year
  Sex: Male
  Weight: 29.25 kg

DRUGS (4)
  1. MULTIMINERALS [Concomitant]
  2. TRIAMCINOLONE CREAM [Suspect]
     Active Substance: TRIAMCINOLONE
     Indication: ECZEMA
     Dates: start: 20080101, end: 20161001
  3. CDB OIL [Concomitant]
  4. MULTIVITAMINS [Concomitant]
     Active Substance: VITAMINS

REACTIONS (2)
  - Eczema [None]
  - Frustration tolerance decreased [None]

NARRATIVE: CASE EVENT DATE: 20161001
